FAERS Safety Report 11094599 (Version 1)
Quarter: 2015Q2

REPORT INFORMATION
  Report Type: Spontaneous
  Country: US (occurrence: US)
  Receive Date: 20150506
  Receipt Date: 20150506
  Transmission Date: 20150821
  Serious: No
  Sender: FDA-Public Use
  Company Number: US-PFIZER INC-2015152763

PATIENT
  Age: 79 Year
  Sex: Male

DRUGS (5)
  1. METOPROLOL TARTRATE. [Concomitant]
     Active Substance: METOPROLOL TARTRATE
     Dosage: 25 MG, 1X/DAY
     Dates: start: 20121213
  2. SUTENT [Suspect]
     Active Substance: SUNITINIB MALATE
     Indication: RENAL CELL CARCINOMA STAGE IV
     Dosage: UNK
  3. SORAFENIB [Concomitant]
     Active Substance: SORAFENIB
     Dosage: 8.8 MG, 2X/DAY (2 AT BEDTIME 90 DAYS)
     Dates: start: 20130307
  4. AFINITOR [Suspect]
     Active Substance: EVEROLIMUS
     Dosage: UNK
  5. INLYTA [Concomitant]
     Active Substance: AXITINIB
     Dosage: 5 MG, 2X/DAY (1 EVERY 12 HOURS)
     Route: 048
     Dates: start: 20150218

REACTIONS (2)
  - Renal cell carcinoma [Unknown]
  - Disease progression [Unknown]
